FAERS Safety Report 25193466 (Version 1)
Quarter: 2025Q2

REPORT INFORMATION
  Report Type: Report from Study
  Country: ZA (occurrence: ZA)
  Receive Date: 20250414
  Receipt Date: 20250414
  Transmission Date: 20250717
  Serious: Yes (Other)
  Sender: ALEXION PHARMACEUTICALS
  Company Number: ZA-AstraZeneca-CH-00843432A

PATIENT
  Age: 52 Year

DRUGS (8)
  1. BUDESONIDE\FORMOTEROL [Suspect]
     Active Substance: BUDESONIDE\FORMOTEROL
     Indication: Asthma
     Route: 065
  2. ISMO [Concomitant]
     Active Substance: ISOSORBIDE MONONITRATE
     Indication: Angina pectoris
  3. Stilpane [Concomitant]
     Indication: Pain
  4. CIMETIDINE [Concomitant]
     Active Substance: CIMETIDINE
  5. Purmycin [Concomitant]
  6. THEOPHYLLINE [Concomitant]
     Active Substance: THEOPHYLLINE
     Indication: Bronchospasm
  7. Topraz [Concomitant]
     Indication: Asthma
  8. Peploc [Concomitant]
     Indication: Ulcer

REACTIONS (1)
  - Total lung capacity decreased [Unknown]
